FAERS Safety Report 10204410 (Version 1)
Quarter: 2014Q2

REPORT INFORMATION
  Report Type: Spontaneous
  Country: US (occurrence: US)
  Receive Date: 20140529
  Receipt Date: 20140529
  Transmission Date: 20141212
  Serious: No
  Sender: FDA-Public Use
  Company Number: US-ASTRAZENECA-2014SE35284

PATIENT
  Age: 52 Year
  Sex: Female

DRUGS (2)
  1. SEROQUEL XR [Suspect]
     Indication: BIPOLAR I DISORDER
     Route: 048
  2. DOXEPIN [Concomitant]

REACTIONS (3)
  - Tooth disorder [Unknown]
  - Dry mouth [Unknown]
  - Constipation [Unknown]
